FAERS Safety Report 7069528 (Version 2)
Quarter: 2014Q3

REPORT INFORMATION
  Report Type: Spontaneous
  Country: US (occurrence: None)
  Receive Date: 20090724
  Receipt Date: 20140926
  Transmission Date: 20150326
  Serious: Yes (Hospitalization, Other)
  Sender: FDA-Public Use
  Company Number: 2009S1005471

PATIENT
  Age: 82 Year
  Sex: Female
  Weight: 68 kg

DRUGS (6)
  1. HYDROCODONE (HYDROCODONE) [Concomitant]
     Active Substance: HYDROCODONE
  2. PHOSPHO-SODA [Suspect]
     Active Substance: SODIUM PHOSPHATE, DIBASIC\SODIUM PHOSPHATE, MONOBASIC
     Indication: COLONOSCOPY
     Route: 048
     Dates: start: 20060124, end: 20060124
  3. CLONAZEPAM (CLONAZEPAM) [Concomitant]
  4. DICYCLOMINE (DICYCLOMINE) [Concomitant]
  5. TYLENOL [Concomitant]
     Active Substance: ACETAMINOPHEN
  6. CEPHALEXIN (CEFALEXIN) [Concomitant]
     Active Substance: CEPHALEXIN

REACTIONS (12)
  - Renal failure chronic [None]
  - Vomiting [None]
  - Renal tubular necrosis [None]
  - Nephrogenic anaemia [None]
  - Acute phosphate nephropathy [None]
  - Hyperparathyroidism secondary [None]
  - Renal failure [None]
  - Malnutrition [None]
  - Constipation [None]
  - Dialysis [None]
  - Nausea [None]
  - Decreased appetite [None]

NARRATIVE: CASE EVENT DATE: 20060126
